FAERS Safety Report 8240686-7 (Version None)
Quarter: 2012Q1

REPORT INFORMATION
  Report Type: 
  Country: None (occurrence: None)
  Receive Date: 20120328
  Receipt Date: 20120316
  Transmission Date: 20120608
  Serious: Yes (Hospitalization, Other)
  Sender: FDA-Public Use
  Company Number: US-SANOFI-AVENTIS-2012SA019202

PATIENT
  Age: 67 Year
  Sex: Female
  Weight: 65.13 kg

DRUGS (33)
  1. DOCETAXEL [Suspect]
     Route: 041
  2. DOCETAXEL [Suspect]
     Dates: start: 20111005, end: 20111005
  3. ALOXI [Concomitant]
  4. FLONASE [Concomitant]
  5. AZITHROMYCIN [Concomitant]
     Dates: start: 20110823, end: 20110830
  6. DOCETAXEL [Suspect]
     Route: 041
  7. DOCETAXEL [Suspect]
     Dates: start: 20110908, end: 20110908
  8. DIPHENHYDRAMINE HCL [Concomitant]
  9. ZOMETA [Concomitant]
  10. SINGULAIR [Concomitant]
  11. VITAMIN D [Concomitant]
  12. ZOFRAN [Concomitant]
  13. DOCETAXEL [Suspect]
     Route: 041
     Dates: start: 20110617, end: 20110617
  14. MORPHINE [Concomitant]
  15. XANAX [Concomitant]
  16. ASPIRIN [Concomitant]
  17. ALBUTEROL [Concomitant]
  18. BUDESONIDE [Concomitant]
  19. MULTI-VITAMINS [Concomitant]
  20. ASCORBIC ACID [Concomitant]
  21. ATIVAN [Concomitant]
  22. AMBIEN [Concomitant]
  23. ZOLOFT [Concomitant]
  24. DOCETAXEL [Suspect]
     Route: 041
  25. PEPCID [Concomitant]
  26. ALBUTEROL SULFATE AND IPRATROPIUM BROMIDE [Concomitant]
  27. MIRALAX [Concomitant]
  28. ALLEGRA [Concomitant]
  29. SYNTHROID [Concomitant]
  30. BLINDED THERAPY [Suspect]
     Dates: start: 20110617, end: 20111005
  31. BLINDED THERAPY [Suspect]
     Dates: start: 20111005, end: 20111028
  32. COMPAZINE [Concomitant]
  33. CALCIUM CARBONATE [Concomitant]

REACTIONS (3)
  - FATIGUE [None]
  - MEDICATION ERROR [None]
  - FEBRILE NEUTROPENIA [None]
